FAERS Safety Report 8379882-7 (Version None)
Quarter: 2012Q2

REPORT INFORMATION
  Report Type: 
  Country: None (occurrence: None)
  Receive Date: 20120523
  Receipt Date: 20120515
  Transmission Date: 20120825
  Serious: Yes (Hospitalization, Other)
  Sender: FDA-Public Use
  Company Number: FR-PFIZER INC-2012122352

PATIENT
  Sex: Male

DRUGS (3)
  1. TENORMIN [Suspect]
     Indication: HYPERTROPHIC CARDIOMYOPATHY
     Dosage: 50 MG, TWICE DAILY
     Route: 064
  2. CORDARONE [Suspect]
     Indication: HYPERTROPHIC CARDIOMYOPATHY
     Dosage: 200 MG/DAY
     Route: 064
     Dates: end: 20110820
  3. CORDARONE [Suspect]
     Dosage: 200 MG, UNK
     Route: 064
     Dates: start: 20111001

REACTIONS (6)
  - LOW BIRTH WEIGHT BABY [None]
  - FOETAL ARRHYTHMIA [None]
  - NEONATAL RESPIRATORY DISTRESS SYNDROME [None]
  - MATERNAL EXPOSURE TIMING UNSPECIFIED [None]
  - FOETAL GROWTH RESTRICTION [None]
  - HYPOGLYCAEMIA NEONATAL [None]
